FAERS Safety Report 6595141-7 (Version None)
Quarter: 2010Q1

REPORT INFORMATION
  Report Type: 
  Country: None (occurrence: None)
  Receive Date: 20100212
  Receipt Date: 20100127
  Transmission Date: 20100710
  Serious: Yes (Hospitalization)
  Sender: FDA-Public Use
  Company Number: TPG2010A00080

PATIENT
  Age: 68 Year
  Sex: Male

DRUGS (4)
  1. ACTOS [Suspect]
     Indication: TYPE 2 DIABETES MELLITUS
     Dosage: PER ORAL
     Route: 048
  2. MINOXIDIL [Suspect]
     Indication: DRUG USE FOR UNKNOWN INDICATION
  3. LOUTEN (LATANOPROST) [Concomitant]
  4. ALISKIREN ORPLACEBO (RENIN-ANGIOTENSIN SYSTEM, AGENTS ACTING ON) [Concomitant]

REACTIONS (6)
  - CONDITION AGGRAVATED [None]
  - GENERALISED OEDEMA [None]
  - HAEMODIALYSIS [None]
  - HYPERTENSION [None]
  - PNEUMONIA [None]
  - RESPIRATORY FAILURE [None]
